FAERS Safety Report 8681322 (Version 2)
Quarter: 2012Q4

REPORT INFORMATION
  Report Type: 
  Country: US (occurrence: US)
  Receive Date: 20120725
  Receipt Date: 20120921
  Transmission Date: 20130627
  Serious: Yes (Death)
  Sender: FDA-Public Use
  Company Number: US-CELGENEUS-163-50794-12072274

PATIENT
  Age: 60 Year
  Sex: Female

DRUGS (9)
  1. VIDAZA [Suspect]
     Indication: CHRONIC MYELOMONOCYTIC LEUKEMIA
     Dosage: 130 Milligram
     Route: 041
     Dates: start: 20120206, end: 20120608
  2. LAMICTAL [Concomitant]
     Indication: SEIZURES
     Dosage: 400 Milligram
     Route: 048
     Dates: end: 20120608
  3. TYLENOL [Concomitant]
     Indication: PAIN
     Dosage: 650 Milligram
     Route: 048
     Dates: end: 20120608
  4. TYLENOL [Concomitant]
     Indication: FEVER
  5. BENADRYL [Concomitant]
     Indication: MULTIPLE ALLERGIES
     Dosage: 25 Milligram
     Route: 048
     Dates: end: 20120608
  6. NORCO [Concomitant]
     Indication: PAIN
     Dosage: 7.5/500 1-2tabs
     Route: 048
     Dates: end: 20120608
  7. ONDANSETRON [Concomitant]
     Indication: NAUSEA
     Dosage: TID
     Route: 048
     Dates: end: 20120608
  8. MIRALAX [Concomitant]
     Indication: CONSTIPATION
     Dosage: 1 dose
     Route: 048
     Dates: end: 20120608
  9. PROMETHAZINE [Concomitant]
     Indication: NAUSEA
     Dosage: 50 Milligram
     Route: 048
     Dates: end: 20120608

REACTIONS (1)
  - Death [Fatal]
